FAERS Safety Report 25526260 (Version 1)
Quarter: 2025Q3

REPORT INFORMATION
  Report Type: Spontaneous
  Country: KR (occurrence: KR)
  Receive Date: 20250707
  Receipt Date: 20250707
  Transmission Date: 20251020
  Serious: Yes (Hospitalization)
  Sender: PFIZER
  Company Number: KR-PFIZER INC-202500132754

PATIENT
  Age: 1 Year
  Sex: Male

DRUGS (1)
  1. VINCRISTINE SULFATE [Suspect]
     Active Substance: VINCRISTINE SULFATE
     Indication: Atypical teratoid/rhabdoid tumour of CNS
     Dosage: 0.3 MG, 1X/DAY
     Dates: start: 20240710, end: 20240710

REACTIONS (6)
  - Febrile neutropenia [Recovered/Resolved]
  - Abdominal pain [Recovered/Resolved]
  - Infantile vomiting [Recovered/Resolved]
  - Pyrexia [Recovered/Resolved]
  - Ileus [Recovered/Resolved]
  - Off label use [Unknown]

NARRATIVE: CASE EVENT DATE: 20240710
